FAERS Safety Report 15005034 (Version 1)
Quarter: 2018Q2

REPORT INFORMATION
  Report Type: Spontaneous
  Country: US (occurrence: US)
  Receive Date: 20180613
  Receipt Date: 20180613
  Transmission Date: 20180711
  Serious: No
  Sender: FDA-Public Use
  Company Number: US-COVIS PHARMA B.V.-2018COV03604

PATIENT
  Age: 72 Year
  Sex: Female
  Weight: 68.27 kg

DRUGS (5)
  1. ADVIL [Concomitant]
     Active Substance: IBUPROFEN
     Dosage: 200 MG, AS NEEDED
     Route: 048
     Dates: start: 201303
  2. XANAX [Concomitant]
     Active Substance: ALPRAZOLAM
     Dosage: 0.25 MG, AS NEEDED
     Route: 048
     Dates: start: 201208
  3. PRILOSEC [Suspect]
     Active Substance: OMEPRAZOLE MAGNESIUM
     Indication: GASTROOESOPHAGEAL REFLUX DISEASE
     Dosage: 20 MG, 1X/DAY
     Route: 048
     Dates: end: 20180313
  4. PRILOSEC [Suspect]
     Active Substance: OMEPRAZOLE MAGNESIUM
     Indication: HIATUS HERNIA
     Dosage: 20 MG, 1X/DAY
     Route: 048
     Dates: start: 20180315
  5. ARIMIDEX [Suspect]
     Active Substance: ANASTROZOLE
     Indication: BREAST CANCER
     Dosage: 1 MG, 1X/DAY
     Route: 048
     Dates: start: 201303, end: 20180201

REACTIONS (14)
  - Myalgia [Not Recovered/Not Resolved]
  - Panic attack [Unknown]
  - Arthralgia [Not Recovered/Not Resolved]
  - Gastrooesophageal reflux disease [Unknown]
  - Influenza like illness [Not Recovered/Not Resolved]
  - Off label use [Unknown]
  - Pain in extremity [Not Recovered/Not Resolved]
  - Drug dose omission [Recovered/Resolved]
  - Muscle spasms [Unknown]
  - Intentional product misuse [Unknown]
  - Cartilage injury [Not Recovered/Not Resolved]
  - Chondropathy [Not Recovered/Not Resolved]
  - Knee deformity [Not Recovered/Not Resolved]
  - Nausea [Not Recovered/Not Resolved]

NARRATIVE: CASE EVENT DATE: 2013
